FAERS Safety Report 8812395 (Version 3)
Quarter: 2015Q1

REPORT INFORMATION
  Report Type: Report from Study
  Country: US (occurrence: US)
  Receive Date: 20120927
  Receipt Date: 20150305
  Transmission Date: 20150721
  Serious: Yes (Death, Hospitalization)
  Sender: FDA-Public Use
  Company Number: US-ROCHE-1095684

PATIENT
  Sex: Female
  Weight: 52.66 kg

DRUGS (27)
  1. AVASTIN [Suspect]
     Active Substance: BEVACIZUMAB
     Indication: COLON CANCER
     Dosage: DOSAGE INFUSED: 509MG
     Route: 042
     Dates: start: 20060802, end: 20070611
  2. PROCRIT [Concomitant]
     Active Substance: ERYTHROPOIETIN
     Dosage: 40,000 UNITS AND 60,000 UNITS
     Route: 058
  3. GRANISETRON [Concomitant]
     Active Substance: GRANISETRON
     Route: 065
  4. IRINOTECAN HYDROCHLORIDE. [Concomitant]
     Active Substance: IRINOTECAN HYDROCHLORIDE
     Route: 042
  5. ONDANSETRON [Concomitant]
     Active Substance: ONDANSETRON
     Route: 042
  6. LEUCOVORIN CALCIUM. [Concomitant]
     Active Substance: LEUCOVORIN CALCIUM
  7. SANDOSTATIN LAR DEPOT [Concomitant]
     Active Substance: OCTREOTIDE ACETATE
  8. SODIUM CHLORIDE. [Concomitant]
     Active Substance: SODIUM CHLORIDE
     Route: 042
  9. DEXAMETHASONE. [Concomitant]
     Active Substance: DEXAMETHASONE
     Route: 042
  10. IMODIUM [Concomitant]
     Active Substance: LOPERAMIDE HYDROCHLORIDE
  11. SODIUM CHLORIDE. [Concomitant]
     Active Substance: SODIUM CHLORIDE
     Route: 042
  12. DEXAMETHASONE. [Concomitant]
     Active Substance: DEXAMETHASONE
     Route: 042
  13. OXALIPLATIN. [Concomitant]
     Active Substance: OXALIPLATIN
  14. DEXTROSE. [Concomitant]
     Active Substance: DEXTROSE
     Route: 042
  15. ADVIL [Concomitant]
     Active Substance: IBUPROFEN
  16. CAMPTOTHECIN [Concomitant]
     Active Substance: CAMPTOTHECIN
  17. OXALIPLATIN. [Concomitant]
     Active Substance: OXALIPLATIN
  18. AVASTIN [Suspect]
     Active Substance: BEVACIZUMAB
     Indication: ADENOCARCINOMA OF COLON
     Route: 042
  19. XELODA [Suspect]
     Active Substance: CAPECITABINE
     Indication: COLON CANCER
  20. FOLINIC ACID [Suspect]
     Active Substance: LEUCOVORIN
     Indication: PRODUCT USED FOR UNKNOWN INDICATION
     Route: 065
  21. VANCOMYCIN [Suspect]
     Active Substance: VANCOMYCIN
     Indication: PRODUCT USED FOR UNKNOWN INDICATION
     Route: 065
  22. AVASTIN [Suspect]
     Active Substance: BEVACIZUMAB
     Indication: METASTASES TO LIVER
     Route: 042
  23. AVASTIN [Suspect]
     Active Substance: BEVACIZUMAB
     Indication: COLON CANCER
  24. XELODA [Suspect]
     Active Substance: CAPECITABINE
     Indication: ADENOCARCINOMA OF COLON
     Route: 065
  25. IRINOTECAN [Suspect]
     Active Substance: IRINOTECAN
     Indication: PRODUCT USED FOR UNKNOWN INDICATION
     Route: 065
  26. FLUOROURACIL. [Concomitant]
     Active Substance: FLUOROURACIL
  27. CIPROFLOXACIN. [Concomitant]
     Active Substance: CIPROFLOXACIN

REACTIONS (10)
  - Alopecia [Unknown]
  - Death [Fatal]
  - Blood bilirubin increased [Unknown]
  - Fatigue [Unknown]
  - Liver function test abnormal [Unknown]
  - Decreased appetite [Recovered/Resolved]
  - Diarrhoea [Unknown]
  - Malaise [Unknown]
  - Drug hypersensitivity [Unknown]
  - Disease progression [Unknown]
